FAERS Safety Report 9858630 (Version 2)
Quarter: 2014Q1

REPORT INFORMATION
  Report Type: Spontaneous
  Country: JP (occurrence: JP)
  Receive Date: 20140131
  Receipt Date: 20140131
  Transmission Date: 20141002
  Serious: Yes (Death, Life-Threatening, Other)
  Sender: FDA-Public Use
  Company Number: JP-PFIZER INC-2013285123

PATIENT
  Age: 43 Year
  Sex: Female

DRUGS (1)
  1. ZOSYN [Suspect]
     Indication: URINARY TRACT INFECTION
     Dosage: 4.5 G, 4X/DAY
     Route: 041
     Dates: start: 20130926, end: 20130928

REACTIONS (1)
  - Renal failure acute [Fatal]
